FAERS Safety Report 11717044 (Version 2)
Quarter: 2015Q4

REPORT INFORMATION
  Report Type: Spontaneous
  Country: PK (occurrence: PK)
  Receive Date: 20151109
  Receipt Date: 20151130
  Transmission Date: 20160304
  Serious: Yes (Other)
  Sender: FDA-Public Use
  Company Number: PK-PFIZER INC-2015380883

PATIENT
  Age: 30 Year
  Sex: Male

DRUGS (2)
  1. METRONIDAZOLE. [Suspect]
     Active Substance: METRONIDAZOLE
     Indication: GASTRIC DISORDER
     Dosage: UNK
  2. HYOSCINE-N-BUTYLBROMIDE [Suspect]
     Active Substance: BUTYLSCOPOLAMINE BROMIDE
     Indication: GASTRIC DISORDER
     Dosage: UNK

REACTIONS (5)
  - Blister [Recovering/Resolving]
  - Linear IgA disease [Recovering/Resolving]
  - Koebner phenomenon [Recovering/Resolving]
  - Injection site hypersensitivity [Recovering/Resolving]
  - Injection site vesicles [Recovering/Resolving]
